FAERS Safety Report 19399739 (Version 1)
Quarter: 2021Q2

REPORT INFORMATION
  Report Type: Spontaneous
  Country: JP (occurrence: JP)
  Receive Date: 20210610
  Receipt Date: 20210610
  Transmission Date: 20210717
  Serious: Yes (Hospitalization)
  Sender: FDA-Public Use
  Company Number: JP-009507513-2106JPN002237

PATIENT
  Age: 72 Year
  Sex: Male
  Weight: 74 kg

DRUGS (13)
  1. GLACTIV [Suspect]
     Active Substance: SITAGLIPTIN
     Indication: TYPE 2 DIABETES MELLITUS
     Dosage: UNK
     Route: 048
  2. NORVASC [Concomitant]
     Active Substance: AMLODIPINE BESYLATE
     Dosage: UNK
     Route: 065
  3. MOHRUS PAP XR [Concomitant]
     Active Substance: KETOPROFEN
     Dosage: UNK
     Route: 065
  4. PREDONINE [Concomitant]
     Active Substance: PREDNISOLONE
     Dosage: 60 MG
     Route: 065
     Dates: start: 20210429, end: 20210513
  5. LENDORMIN [Concomitant]
     Active Substance: BROTIZOLAM
     Dosage: UNK
     Route: 065
  6. ACETAMINOPHEN. [Concomitant]
     Active Substance: ACETAMINOPHEN
     Dosage: UNK
     Route: 065
  7. OPDIVO [Suspect]
     Active Substance: NIVOLUMAB
     Indication: NON-SMALL CELL LUNG CANCER RECURRENT
     Dosage: 240 MG
     Route: 041
     Dates: start: 20210118, end: 20210330
  8. YERVOY [Suspect]
     Active Substance: IPILIMUMAB
     Indication: NON-SMALL CELL LUNG CANCER RECURRENT
     Dosage: 70 MG
     Route: 041
     Dates: start: 20210118, end: 20210302
  9. RINDERON V [Concomitant]
     Active Substance: BETAMETHASONE VALERATE
     Dosage: UNK
     Route: 065
  10. SODIUM BICARBONATE. [Concomitant]
     Active Substance: SODIUM BICARBONATE
     Dosage: UNK
     Route: 065
  11. ANORO [Concomitant]
     Active Substance: UMECLIDINIUM BROMIDE\VILANTEROL TRIFENATATE
     Dosage: INHALER
     Route: 055
  12. AMBROXOL HYDROCHLORIDE [Concomitant]
     Active Substance: AMBROXOL HYDROCHLORIDE
     Dosage: UNK
     Route: 065
  13. ATENOLOL. [Concomitant]
     Active Substance: ATENOLOL
     Dosage: UNK
     Route: 065

REACTIONS (1)
  - Hypopituitarism [Recovered/Resolved]

NARRATIVE: CASE EVENT DATE: 20210430
